FAERS Safety Report 12506134 (Version 1)
Quarter: 2016Q2

REPORT INFORMATION
  Report Type: Spontaneous
  Country: US (occurrence: US)
  Receive Date: 20160628
  Receipt Date: 20160628
  Transmission Date: 20160815
  Serious: No
  Sender: FDA-Public Use
  Company Number: GXBR2016US000541

PATIENT
  Age: 61 Year
  Sex: Female
  Weight: 61.22 kg

DRUGS (7)
  1. LISINOPRIL. [Concomitant]
     Active Substance: LISINOPRIL
     Indication: HYPERTENSION
     Dosage: UNK DF, UNK
  2. CLONAZEPAM TABLETS, USP [Suspect]
     Active Substance: CLONAZEPAM
     Indication: SEIZURE
     Dosage: 0.5 MG, TID
     Route: 048
     Dates: start: 20160113
  3. ACETAMINOPHEN. [Concomitant]
     Active Substance: ACETAMINOPHEN
     Indication: PAIN
     Dosage: UNK DF, PRN
  4. FUROSEMIDE. [Concomitant]
     Active Substance: FUROSEMIDE
     Indication: CARDIAC FAILURE CONGESTIVE
     Dosage: UNK DF, UNK
  5. GABAPENTIN. [Concomitant]
     Active Substance: GABAPENTIN
     Indication: NEURALGIA
     Dosage: UNK DF, UNK
  6. VITAMIN D [Concomitant]
     Active Substance: CHOLECALCIFEROL
     Indication: VITAMIN SUPPLEMENTATION
     Dosage: UNK DF, UNK
  7. SIMVASTATIN. [Concomitant]
     Active Substance: SIMVASTATIN
     Indication: BLOOD CHOLESTEROL INCREASED
     Dosage: UNK DF, UNK

REACTIONS (5)
  - Drug interaction [Recovered/Resolved]
  - Blood pressure increased [Recovered/Resolved]
  - Nausea [Recovering/Resolving]
  - Gastrointestinal pain [Recovered/Resolved]
  - Drug effect decreased [Recovered/Resolved]
